FAERS Safety Report 21423041 (Version 1)
Quarter: 2022Q4

REPORT INFORMATION
  Report Type: Spontaneous
  Country: NL (occurrence: NL)
  Receive Date: 20221007
  Receipt Date: 20221007
  Transmission Date: 20230113
  Serious: Yes (Hospitalization)
  Sender: FDA-Public Use
  Company Number: None

PATIENT
  Age: 64 Year
  Sex: Female
  Weight: 70 kg

DRUGS (3)
  1. CARBAMAZEPINE [Suspect]
     Active Substance: CARBAMAZEPINE
     Indication: Trigeminal neuralgia
     Dosage: 2 DOSAGE FORMS DAILY; 2 X PER DAY (1; 2 PIECE) (DURING 1 WEEK), CARBAMAZEPINE TABLET 200MG / BRAND N
     Dates: start: 202208, end: 20220906
  2. CARBAMAZEPINE [Suspect]
     Active Substance: CARBAMAZEPINE
     Dosage: 400 MILLIGRAM DAILY; 2 X PER DAY 1 PIECE (DURING 1 WEEK), THERAPY END DATE: ASKU
     Dates: start: 20220803
  3. CARBAMAZEPINE [Suspect]
     Active Substance: CARBAMAZEPINE
     Dosage: 800 MILLIGRAM DAILY; INCREASED TO 2 X A DAY 2 PIECES, THERAPY END DATE: ASKU
     Dates: start: 202208

REACTIONS (11)
  - Paraesthesia [Recovering/Resolving]
  - Erythema [Recovering/Resolving]
  - Pyrexia [Recovering/Resolving]
  - Purpura [Unknown]
  - Pyrexia [Recovered/Resolved]
  - Pain [Unknown]
  - Skin disorder [Recovering/Resolving]
  - Pruritus [Unknown]
  - Blister [Unknown]
  - Confusional state [Recovered/Resolved]
  - Dizziness [Recovered/Resolved]

NARRATIVE: CASE EVENT DATE: 20220906
